FAERS Safety Report 13604847 (Version 1)
Quarter: 2017Q2

REPORT INFORMATION
  Report Type: Spontaneous
  Country: US (occurrence: US)
  Receive Date: 20170601
  Receipt Date: 20170601
  Transmission Date: 20170830
  Serious: Yes (Hospitalization)
  Sender: FDA-Public Use
  Company Number: None

PATIENT
  Age: 62 Year
  Sex: Female

DRUGS (3)
  1. TRACLEER [Suspect]
     Active Substance: BOSENTAN
     Indication: HEART DISEASE CONGENITAL
     Route: 048
     Dates: start: 20170512
  2. TRACLEER [Suspect]
     Active Substance: BOSENTAN
     Indication: PULMONARY ARTERIAL HYPERTENSION
     Route: 048
     Dates: start: 20170512
  3. TRACLEER [Suspect]
     Active Substance: BOSENTAN
     Indication: CONNECTIVE TISSUE DISORDER
     Route: 048
     Dates: start: 20170512

REACTIONS (4)
  - Acute respiratory failure [None]
  - Respiratory failure [None]
  - Cardiac failure acute [None]
  - Pneumonia [None]

NARRATIVE: CASE EVENT DATE: 20170521
